FAERS Safety Report 8125316-7 (Version None)
Quarter: 2012Q1

REPORT INFORMATION
  Report Type: 
  Country: None (occurrence: None)
  Receive Date: 20120209
  Receipt Date: 20110517
  Transmission Date: 20120608
  Serious: Yes (Hospitalization)
  Sender: FDA-Public Use
  Company Number: US-GLAXOSMITHKLINE-A0928843A

PATIENT
  Sex: Female

DRUGS (1)
  1. AVANDIA [Suspect]
     Indication: DIABETES MELLITUS
     Route: 048

REACTIONS (5)
  - CORONARY ARTERIAL STENT INSERTION [None]
  - CHEST DISCOMFORT [None]
  - ANGINA PECTORIS [None]
  - CARDIAC MONITORING [None]
  - HAEMATOMA [None]
